FAERS Safety Report 4899620-X (Version None)
Quarter: 2006Q1

REPORT INFORMATION
  Report Type: 
  Country: None (occurrence: None)
  Receive Date: 20060131
  Receipt Date: 20060130
  Transmission Date: 20060701
  Serious: Yes (Hospitalization, Other)
  Sender: FDA-Public Use
  Company Number: USA-2004-0017727

PATIENT
  Sex: Male

DRUGS (8)
  1. OXYCONTIN [Suspect]
     Indication: PAIN
     Dosage: 40 MG, DAILY, ORAL; 80 MG, DAILY, ORAL
     Route: 048
     Dates: start: 20000501
  2. OXYCODONE HCL [Concomitant]
  3. VICODIN [Concomitant]
  4. DEMEROL [Concomitant]
  5. VISTARIL [Concomitant]
  6. TORADOL [Concomitant]
  7. PAXIL [Concomitant]
  8. TENORMIN [Concomitant]

REACTIONS (20)
  - ABNORMAL DREAMS [None]
  - AFFECTIVE DISORDER [None]
  - ANXIETY [None]
  - ARTHRALGIA [None]
  - DELIRIUM TREMENS [None]
  - DEPRESSION [None]
  - DIARRHOEA [None]
  - DRUG ABUSER [None]
  - DRUG DEPENDENCE [None]
  - DRUG WITHDRAWAL SYNDROME [None]
  - GASTROINTESTINAL PAIN [None]
  - INADEQUATE ANALGESIA [None]
  - INJURY [None]
  - LACRIMATION INCREASED [None]
  - PARANOIA [None]
  - PSYCHOMOTOR HYPERACTIVITY [None]
  - RETCHING [None]
  - SOMNOLENCE [None]
  - SUICIDAL IDEATION [None]
  - WEIGHT DECREASED [None]
